FAERS Safety Report 5298504-5 (Version None)
Quarter: 2007Q2

REPORT INFORMATION
  Report Type: 
  Country: None (occurrence: None)
  Receive Date: 20070409
  Receipt Date: 20070329
  Transmission Date: 20071010
  Serious: Yes (Other)
  Sender: FDA-Public Use
  Company Number: 2007BI004780

PATIENT
  Age: 56 Year
  Sex: Female

DRUGS (13)
  1. AVONEX [Suspect]
     Indication: MULTIPLE SCLEROSIS
     Dosage: 30 UG; QW; IM
     Route: 030
     Dates: start: 20030101, end: 20060201
  2. AVONEX [Suspect]
     Indication: MULTIPLE SCLEROSIS
     Dosage: 30 UG; QW; IM
     Route: 030
     Dates: start: 20060501
  3. NEURONTIN [Concomitant]
  4. PREVACID [Concomitant]
  5. SOLU-MEDROL [Concomitant]
  6. OXYCODONE HCL [Concomitant]
  7. AMBIEN [Concomitant]
  8. TYLENOL [Concomitant]
  9. MOTRIN [Concomitant]
  10. ALEVE [Concomitant]
  11. FLUOXETINE [Concomitant]
  12. PREMARIN [Concomitant]
  13. MEVACOR [Concomitant]

REACTIONS (1)
  - BASAL CELL CARCINOMA [None]
